FAERS Safety Report 7070656-6 (Version None)
Quarter: 2010Q4

REPORT INFORMATION
  Report Type: 
  Country: None (occurrence: None)
  Receive Date: 20101029
  Receipt Date: 20101022
  Transmission Date: 20110411
  Serious: Yes (Other)
  Sender: FDA-Public Use
  Company Number: GB-PFIZER INC-2010135063

PATIENT
  Age: 75 Year
  Sex: Female

DRUGS (2)
  1. LIPITOR [Suspect]
     Dosage: 10 MG, 1X/DAY
  2. CLOPIDOGREL [Suspect]
     Dosage: UNK

REACTIONS (2)
  - CONTUSION [None]
  - THROMBOSIS [None]
